FAERS Safety Report 24030586 (Version 1)
Quarter: 2024Q2

REPORT INFORMATION
  Report Type: Spontaneous
  Country: US (occurrence: US)
  Receive Date: 20240628
  Receipt Date: 20240628
  Transmission Date: 20240716
  Serious: No
  Sender: FDA-Public Use
  Company Number: US-RIGEL Pharmaceuticals, INC-2024OLU000031

PATIENT
  Sex: Male

DRUGS (2)
  1. REZLIDHIA [Suspect]
     Active Substance: OLUTASIDENIB
     Indication: Acute myeloid leukaemia
     Dosage: 150 MG, BID
     Route: 048
     Dates: start: 20240305, end: 2024
  2. REZLIDHIA [Suspect]
     Active Substance: OLUTASIDENIB
     Dosage: 150 MG, BID
     Route: 048
     Dates: start: 2024, end: 2024

REACTIONS (1)
  - Dyspnoea [Unknown]

NARRATIVE: CASE EVENT DATE: 20240101
